FAERS Safety Report 5845482-3 (Version None)
Quarter: 2008Q3

REPORT INFORMATION
  Report Type: 
  Country: None (occurrence: None)
  Receive Date: 20080814
  Receipt Date: 20080805
  Transmission Date: 20090109
  Serious: Yes (Other)
  Sender: FDA-Public Use
  Company Number: JP-WYE-H04373908

PATIENT

DRUGS (12)
  1. ANCARON [Suspect]
     Indication: HYPERTROPHIC CARDIOMYOPATHY
     Dosage: 1.25 MG/DL AT 10 ML/MIN
     Route: 042
     Dates: start: 20080504, end: 20080504
  2. ANCARON [Suspect]
     Indication: ATRIAL FLUTTER
     Dosage: 1.50 MG/DL AT 33 ML/HR
     Route: 042
     Dates: start: 20080504, end: 20080501
  3. ANCARON [Suspect]
     Indication: TACHYCARDIA PAROXYSMAL
     Dosage: 1.50 MG/DL AT 17 ML/HR
     Route: 042
     Dates: start: 20080505, end: 20080501
  4. ANCARON [Suspect]
     Dosage: 1.50 MG/DL AT 10 ML/HR
     Route: 042
     Dates: start: 20080505, end: 20080507
  5. UNASYN [Concomitant]
     Indication: INFLAMMATION
     Route: 065
     Dates: start: 20080507, end: 20080509
  6. CALCIUM POLYSTYRENE SULFONATE [Concomitant]
     Indication: HYPERKALAEMIA
     Dosage: 25 G (2 TO 3 TIMES DAILY)
     Route: 048
     Dates: start: 20080504, end: 20080507
  7. CALCIUM POLYSTYRENE SULFONATE [Concomitant]
     Indication: RENAL FAILURE CHRONIC
  8. ZOLPIDEM TARTRATE [Concomitant]
     Indication: INSOMNIA
     Dosage: 5 MG AS NEEDED
     Route: 048
     Dates: start: 20080507
  9. ANCARON [Suspect]
     Route: 048
     Dates: start: 20080507, end: 20080508
  10. ANCARON [Suspect]
     Route: 048
     Dates: start: 20080509, end: 20080514
  11. ANCARON [Suspect]
  12. SELOKEN [Concomitant]
     Indication: CARDIAC FAILURE CHRONIC
     Dosage: 20 MG (1 TO 3 TIMES DAILY)
     Route: 048
     Dates: start: 20080504

REACTIONS (9)
  - ALANINE AMINOTRANSFERASE INCREASED [None]
  - ASPARTATE AMINOTRANSFERASE INCREASED [None]
  - BLOOD BILIRUBIN INCREASED [None]
  - BLOOD BILIRUBIN UNCONJUGATED INCREASED [None]
  - C-REACTIVE PROTEIN INCREASED [None]
  - CONDITION AGGRAVATED [None]
  - ELECTROCARDIOGRAM QT PROLONGED [None]
  - GAMMA-GLUTAMYLTRANSFERASE INCREASED [None]
  - HEPATIC FUNCTION ABNORMAL [None]
